FAERS Safety Report 11232844 (Version 1)
Quarter: 2015Q3

REPORT INFORMATION
  Report Type: Report from Study
  Country: US (occurrence: US)
  Receive Date: 20150701
  Receipt Date: 20150701
  Transmission Date: 20151125
  Serious: Yes (Other)
  Sender: FDA-Public Use
  Company Number: US-ABBVIE-15P-163-1412547-00

PATIENT
  Age: 27 Year
  Sex: Female
  Weight: 82.17 kg

DRUGS (1)
  1. LUPRON DEPOT [Suspect]
     Active Substance: LEUPROLIDE ACETATE
     Indication: ENDOMETRIOSIS
     Route: 030
     Dates: start: 201208, end: 201308

REACTIONS (6)
  - Infertility [Unknown]
  - Endometriosis [Not Recovered/Not Resolved]
  - Pelvic adhesions [Unknown]
  - Pelvic pain [Unknown]
  - Abdominal pain [Not Recovered/Not Resolved]
  - Menstruation irregular [Not Recovered/Not Resolved]

NARRATIVE: CASE EVENT DATE: 201401
